FAERS Safety Report 8532884-X (Version None)
Quarter: 2012Q3

REPORT INFORMATION
  Report Type: 
  Country: None (occurrence: None)
  Receive Date: 20120724
  Receipt Date: 20120719
  Transmission Date: 20120928
  Serious: Yes (Hospitalization)
  Sender: FDA-Public Use
  Company Number: GB-AMGEN-GBRCT2012035460

PATIENT
  Age: 51 Year
  Sex: Female
  Weight: 116.4 kg

DRUGS (29)
  1. CYCLIZINE [Concomitant]
     Dosage: 50 MG, UNK
     Route: 048
     Dates: start: 20120419
  2. CALCICHEW D3 FORTE [Concomitant]
     Dosage: UNK
     Route: 048
     Dates: start: 20120525
  3. DENOSUMAB [Suspect]
     Indication: BREAST CANCER
     Dosage: 120 MG, UNK
     Route: 058
     Dates: start: 20120525
  4. ADRIAMYCIN PFS [Concomitant]
     Dosage: 110 MG, UNK
     Route: 042
     Dates: start: 20120416
  5. SENNA-MINT WAF [Concomitant]
     Dosage: UNK
     Route: 048
  6. DIAZEPAM [Concomitant]
     Dosage: 2 MG, UNK
     Route: 048
  7. NAPROXEN [Concomitant]
     Dosage: 250 MG, UNK
     Route: 048
  8. LEVOFLOXACIN [Concomitant]
     Dosage: 500 MG, UNK
     Route: 048
     Dates: start: 20120420
  9. DOCUSATE [Concomitant]
     Route: 048
     Dates: start: 20120525
  10. PIPERACILLIN AND TAZOBACTAM [Concomitant]
     Dosage: 4.5 G, UNK
     Route: 042
     Dates: start: 20120423, end: 20120425
  11. PEGFILGRASTIM [Concomitant]
     Dosage: 6 MG, UNK
     Route: 058
     Dates: start: 20120417, end: 20120417
  12. CYCLOPHOSPHAMIDE [Concomitant]
     Dosage: 1100 MG, UNK
     Route: 042
     Dates: start: 20120416
  13. DALTEPARIN SODIUM [Concomitant]
     Dosage: 5000 UNK, UNK
     Route: 058
     Dates: start: 20120423, end: 20120423
  14. LAXIDO [Concomitant]
     Dosage: UNK
     Route: 048
     Dates: start: 20120423, end: 20120425
  15. OTOMIZE [Concomitant]
     Dosage: UNK
     Route: 061
  16. DOMPERIDONE [Concomitant]
     Dosage: 10 MG, UNK
     Route: 048
     Dates: start: 20120416
  17. FYBOGEL [Concomitant]
     Dosage: UNK
     Route: 048
     Dates: start: 20120425
  18. DEXAMETHASONE [Concomitant]
     Dosage: 8 MG, UNK
     Route: 048
     Dates: start: 20120415, end: 20120417
  19. TAXOTERE [Concomitant]
     Dosage: UNK
     Route: 042
     Dates: start: 20120416
  20. TEMAZEPAM [Concomitant]
     Dosage: 10 MG, UNK
     Route: 048
  21. ACETAMINOPHEN [Concomitant]
     Dosage: 1 G, UNK
     Route: 048
  22. CODEINE SULFATE [Concomitant]
     Dosage: 15 MG, UNK
     Route: 048
     Dates: start: 20120425, end: 20120425
  23. IBUPROFEN [Concomitant]
     Dosage: 400 MG, UNK
     Route: 048
     Dates: start: 20120419, end: 20120421
  24. ACETAMINOPHEN AND CODEINE PHOSPHATE [Concomitant]
     Dosage: UNK
     Route: 048
     Dates: start: 20120419
  25. FUROSEMIDE [Concomitant]
     Route: 048
     Dates: start: 20120529
  26. QUININE BISULFATE [Concomitant]
     Dosage: 300 MG, UNK
     Route: 048
  27. TRAMADOL HYDROCHLORIDE [Concomitant]
     Dosage: 100 MG, UNK
     Route: 048
     Dates: start: 20120420, end: 20120420
  28. FLUCONAZOLE [Concomitant]
     Dosage: 50 MG, UNK
     Route: 048
     Dates: start: 20120420
  29. GRANISETRON [Concomitant]
     Dosage: 3 MG, UNK
     Route: 042
     Dates: start: 20120416

REACTIONS (1)
  - MALAISE [None]
